FAERS Safety Report 6537881-1 (Version None)
Quarter: 2010Q1

REPORT INFORMATION
  Report Type: 
  Country: None (occurrence: None)
  Receive Date: 20100112
  Receipt Date: 20100112
  Transmission Date: 20100710
  Serious: Yes (Hospitalization)
  Sender: FDA-Public Use
  Company Number: None

PATIENT
  Age: 55 Year
  Sex: Male
  Weight: 92.3 kg

DRUGS (12)
  1. INSULIN GLARGINE -LANTUS- 100 UNITS/ML SANOFI-AVENTIS [Suspect]
     Indication: TYPE 2 DIABETES MELLITUS
     Dosage: 20 UNITS DAILY SQ
     Route: 058
     Dates: start: 20081101, end: 20091201
  2. LANTUS [Concomitant]
  3. INSULIN ASPART-NOVOLOG FLEXPEN [Concomitant]
  4. TOPROL-XL [Concomitant]
  5. HYDRACHLOROTHIAZIDE [Concomitant]
  6. LISINOPRIL [Concomitant]
  7. ASPIRIN [Concomitant]
  8. ELECTROLYTE LAVAGE -GO-LYTELY- [Concomitant]
  9. GLUCOPHAGE [Concomitant]
  10. GLIPIZIDE [Concomitant]
  11. FENOFIBRATE -TRIGLIDE- [Concomitant]
  12. ALPROSTADIL -MUSE- [Concomitant]

REACTIONS (8)
  - DIZZINESS [None]
  - DYSPNOEA [None]
  - HYPERSENSITIVITY [None]
  - INJECTION SITE ERYTHEMA [None]
  - INJECTION SITE SWELLING [None]
  - NAUSEA [None]
  - PRURITUS [None]
  - SWELLING [None]
